FAERS Safety Report 8804489 (Version 1)
Quarter: 2012Q4

REPORT INFORMATION
  Report Type: 
  Country: BR (occurrence: BR)
  Receive Date: 20120924
  Receipt Date: 20120924
  Transmission Date: 20130627
  Serious: Yes (Hospitalization, Disabling)
  Sender: FDA-Public Use
  Company Number: BR-ABBOTT-12P-020-0964902-00

PATIENT
  Age: 86 Year
  Sex: Female

DRUGS (4)
  1. ATACAND HCT [Suspect]
     Indication: HYPERTENSION
     Dosage: 16/12.5 mg daily
     Route: 048
     Dates: end: 201206
  2. CRESTOR [Suspect]
     Indication: BLOOD CHOLESTEROL INCREASED
     Route: 048
  3. PURAN T4 [Concomitant]
     Indication: THYROID DISORDER
     Route: 048
  4. PANTOPRAZOLE [Concomitant]
     Indication: PRODUCT USED FOR UNKNOWN INDICATION
     Route: 048

REACTIONS (3)
  - Ischaemic stroke [Recovered/Resolved with Sequelae]
  - Dementia [Not Recovered/Not Resolved]
  - Gait disturbance [Unknown]
